FAERS Safety Report 25062700 (Version 3)
Quarter: 2025Q3

REPORT INFORMATION
  Report Type: Spontaneous
  Country: US (occurrence: US)
  Receive Date: 20250311
  Receipt Date: 20250812
  Transmission Date: 20251020
  Serious: Yes (Hospitalization)
  Sender: GLAXOSMITHKLINE
  Company Number: US-GSK-US2025AMR028148

PATIENT
  Sex: Male

DRUGS (2)
  1. BENLYSTA [Suspect]
     Active Substance: BELIMUMAB
     Indication: Systemic lupus erythematosus
     Dosage: 200 MG/ML, WE
  2. BENLYSTA [Suspect]
     Active Substance: BELIMUMAB
     Indication: Renal disorder

REACTIONS (2)
  - Hospitalisation [Unknown]
  - Product dose omission issue [Unknown]
